FAERS Safety Report 5254732-6 (Version None)
Quarter: 2007Q1

REPORT INFORMATION
  Report Type: 
  Country: None (occurrence: None)
  Receive Date: 20070228
  Receipt Date: 20070222
  Transmission Date: 20070707
  Serious: Yes (Disabling, Other)
  Sender: FDA-Public Use
  Company Number: GXBR2006US02109

PATIENT
  Age: 70 Year
  Sex: Male
  Weight: 83.9 kg

DRUGS (2)
  1. LORATADINE [Suspect]
     Indication: SEASONAL ALLERGY
     Dosage: 10 MG, QD, ORAL
     Route: 048
     Dates: start: 20060401, end: 20060601
  2. ZYRTEC [Concomitant]

REACTIONS (2)
  - MACULAR HOLE [None]
  - VISION BLURRED [None]
